FAERS Safety Report 5117877-7 (Version None)
Quarter: 2006Q3

REPORT INFORMATION
  Report Type: 
  Country: None (occurrence: None)
  Receive Date: 20060926
  Receipt Date: 20060915
  Transmission Date: 20061208
  Serious: Yes (Hospitalization, Other)
  Sender: FDA-Public Use
  Company Number: 2005-09-1049

PATIENT
  Age: 71 Year
  Sex: Female

DRUGS (4)
  1. PEG-INTRON [Suspect]
     Indication: HEPATITIS C
     Dosage: 60 + 30 MCG;/WK; SC
     Route: 058
     Dates: start: 20050318, end: 20050729
  2. PEG-INTRON [Suspect]
     Indication: HEPATITIS C
     Dosage: 60 + 30 MCG;/WK; SC
     Route: 058
     Dates: start: 20050805, end: 20050812
  3. REBETOL [Suspect]
     Indication: HEPATITIS C
     Dosage: SEE IMAGE
     Route: 048
     Dates: start: 20050318, end: 20050427
  4. REBETOL [Suspect]
     Indication: HEPATITIS C
     Dosage: SEE IMAGE
     Route: 048
     Dates: start: 20050428, end: 20050812

REACTIONS (6)
  - BLOOD DISORDER [None]
  - CEREBRAL HAEMATOMA [None]
  - CEREBRAL HAEMORRHAGE [None]
  - HAEMOGLOBIN DECREASED [None]
  - HEMIANOPIA HOMONYMOUS [None]
  - PLATELET COUNT DECREASED [None]
